FAERS Safety Report 5068750-4 (Version None)
Quarter: 2006Q3

REPORT INFORMATION
  Report Type: 
  Country: None (occurrence: None)
  Receive Date: 20060802
  Receipt Date: 20060316
  Transmission Date: 20061208
  Serious: No
  Sender: FDA-Public Use
  Company Number: US-BRISTOL-MYERS SQUIBB COMPANY-13317110

PATIENT
  Age: 83 Year
  Sex: Female
  Weight: 73 kg

DRUGS (7)
  1. COUMADIN [Suspect]
     Indication: HEART RATE IRREGULAR
     Dates: start: 20060101
  2. PLAVIX [Concomitant]
  3. ALTACE [Concomitant]
  4. FOSAMAX [Concomitant]
  5. NEURONTIN [Concomitant]
  6. SYNTHROID [Concomitant]
  7. OSTEO BI-FLEX [Concomitant]

REACTIONS (4)
  - CONTUSION [None]
  - DENTAL CARIES [None]
  - HEADACHE [None]
  - MACULAR DEGENERATION [None]
